FAERS Safety Report 17130008 (Version 2)
Quarter: 2019Q4

REPORT INFORMATION
  Report Type: Spontaneous
  Country: US (occurrence: US)
  Receive Date: 20191209
  Receipt Date: 20191231
  Transmission Date: 20200122
  Serious: No
  Sender: FDA-Public Use
  Company Number: US-SA-2019SA335499

PATIENT
  Age: 41 Year
  Sex: Female

DRUGS (1)
  1. DUPIXENT [Suspect]
     Active Substance: DUPILUMAB
     Dosage: 300 MG
     Route: 058
     Dates: start: 201901

REACTIONS (4)
  - Skin mass [Unknown]
  - Product dose omission [Unknown]
  - Miliaria [Unknown]
  - Urticaria [Unknown]

NARRATIVE: CASE EVENT DATE: 2019
